FAERS Safety Report 8372632-X (Version None)
Quarter: 2012Q2

REPORT INFORMATION
  Report Type: 
  Country: None (occurrence: None)
  Receive Date: 20120521
  Receipt Date: 20120515
  Transmission Date: 20120825
  Serious: Yes (Death, Other)
  Sender: FDA-Public Use
  Company Number: PHHY2012US041327

PATIENT
  Age: 54 Year
  Sex: Male

DRUGS (1)
  1. IMATINIB MESYLATE [Suspect]
     Indication: GASTROINTESTINAL STROMAL TUMOUR
     Dosage: 400- 800 PER DAY

REACTIONS (8)
  - NEOPLASM MALIGNANT [None]
  - DEATH [None]
  - NEOPLASM PROGRESSION [None]
  - GASTROINTESTINAL STROMAL TUMOUR [None]
  - POST EMBOLISATION SYNDROME [None]
  - NEOPLASM RECURRENCE [None]
  - DRUG RESISTANCE [None]
  - THERAPEUTIC RESPONSE DECREASED [None]
